FAERS Safety Report 7480693-5 (Version None)
Quarter: 2011Q2

REPORT INFORMATION
  Report Type: 
  Country: None (occurrence: None)
  Receive Date: 20110512
  Receipt Date: 20110512
  Transmission Date: 20111010
  Serious: Yes (Hospitalization)
  Sender: FDA-Public Use
  Company Number: None

PATIENT
  Sex: Female
  Weight: 49.5 kg

DRUGS (3)
  1. KEPPRA [Concomitant]
  2. TAXOTERE [Concomitant]
  3. SUNITINIB MALATE [Suspect]
     Indication: BRAIN NEOPLASM
     Dosage: 37.5 QD ORAL
     Route: 048
     Dates: start: 20110325, end: 20110427

REACTIONS (4)
  - PARTIAL SEIZURES [None]
  - CENTRAL NERVOUS SYSTEM LESION [None]
  - CONDITION AGGRAVATED [None]
  - STATUS EPILEPTICUS [None]
